FAERS Safety Report 9686211 (Version 1)
Quarter: 2013Q4

REPORT INFORMATION
  Report Type: Spontaneous
  Country: US (occurrence: US)
  Receive Date: 20131113
  Receipt Date: 20131113
  Transmission Date: 20140711
  Serious: Yes (Other)
  Sender: FDA-Public Use
  Company Number: US-JNJFOC-20131102706

PATIENT
  Sex: Male
  Weight: 81.65 kg

DRUGS (1)
  1. INVEGA SUSTENA [Suspect]
     Indication: SCHIZOPHRENIA
     Route: 030

REACTIONS (4)
  - Cardiomegaly [Unknown]
  - Nervous system disorder [Unknown]
  - Dystonia [Unknown]
  - Heart rate increased [Unknown]
